FAERS Safety Report 8828012 (Version 2)
Quarter: 2012Q4

REPORT INFORMATION
  Report Type: 
  Country: US (occurrence: US)
  Receive Date: 20121008
  Receipt Date: 20121221
  Transmission Date: 20130627
  Serious: Yes (Disabling, Other)
  Sender: FDA-Public Use
  Company Number: US-009507513-1205USA00985

PATIENT

DRUGS (4)
  1. FOSAMAX [Suspect]
     Indication: OSTEOPOROSIS
     Dosage: 10 mg, UNK
     Route: 048
     Dates: start: 199910, end: 200406
  2. FOSAMAX PLUS D [Suspect]
     Dosage: UNK
     Route: 048
  3. FOSAMAX [Suspect]
     Dosage: UNK
     Route: 048
  4. HORMONES (UNSPECIFIED) [Concomitant]
     Dosage: UNK
     Dates: start: 1987

REACTIONS (20)
  - Femur fracture [Unknown]
  - Surgery [Unknown]
  - Femur fracture [Unknown]
  - Surgery [Unknown]
  - Bone density decreased [Unknown]
  - Cholecystectomy [Unknown]
  - Hypertension [Unknown]
  - Crohn^s disease [Unknown]
  - Lower limb fracture [Unknown]
  - Rib fracture [Unknown]
  - Vitiligo [Unknown]
  - Alopecia areata [Unknown]
  - Uterine dilation and curettage [Unknown]
  - Intervertebral disc protrusion [Unknown]
  - Biopsy peripheral nerve [Unknown]
  - Cyst removal [Unknown]
  - Skin hyperpigmentation [Unknown]
  - Pulmonary function test decreased [Unknown]
  - Stomatitis [Unknown]
  - Chronic fatigue syndrome [Unknown]
